FAERS Safety Report 10344906 (Version 1)
Quarter: 2014Q3

REPORT INFORMATION
  Report Type: Spontaneous
  Country: US (occurrence: US)
  Receive Date: 20140728
  Receipt Date: 20140728
  Transmission Date: 20150326
  Serious: No
  Sender: FDA-Public Use
  Company Number: US-PFIZER INC-2014205365

PATIENT
  Age: 29 Year
  Sex: Female
  Weight: 63.03 kg

DRUGS (2)
  1. PREDNISONE. [Suspect]
     Active Substance: PREDNISONE
     Dosage: 6 PO QAM WITH FOOD X1 DAY, THEN DECREASE BY 1 PILL EVERY DAY UNTIL GONE)
     Route: 048
  2. IBUPROFEN. [Suspect]
     Active Substance: IBUPROFEN
     Dosage: 800 MG, UNK (TAKES 4 200MG IBUPROFEN 1-2/DAY)
     Route: 048

REACTIONS (1)
  - Drug effect incomplete [Unknown]
